FAERS Safety Report 7464933-4 (Version None)
Quarter: 2011Q2

REPORT INFORMATION
  Report Type: 
  Country: None (occurrence: None)
  Receive Date: 20110505
  Receipt Date: 20110505
  Transmission Date: 20111010
  Serious: Yes (Other)
  Sender: FDA-Public Use
  Company Number: None

PATIENT
  Age: 64 Year
  Sex: Male
  Weight: 80.7403 kg

DRUGS (1)
  1. TUBERCULIN PPD (APLISOL) JHP PHARM. 5 T.U./0.1ML [Suspect]
     Indication: MYCOBACTERIUM TUBERCULOSIS COMPLEX TEST
     Dosage: 0.1ML NEW HIRE/ANNUAL I.D.
     Route: 023
     Dates: start: 20110328

REACTIONS (2)
  - EMPHYSEMA [None]
  - TUBERCULIN TEST POSITIVE [None]
